FAERS Safety Report 4560931-9 (Version None)
Quarter: 2005Q1

REPORT INFORMATION
  Report Type: 
  Country: None (occurrence: None)
  Receive Date: 20050126
  Receipt Date: 20040128
  Transmission Date: 20050727
  Serious: No
  Sender: FDA-Public Use
  Company Number: US-BRISTOL-MYERS SQUIBB COMPANY-12489712

PATIENT
  Age: 31 Year
  Sex: Female
  Weight: 86 kg

DRUGS (2)
  1. METFORMIN HCL [Suspect]
     Indication: POLYCYSTIC OVARIES
     Route: 048
     Dates: start: 20030701
  2. LEXAPRO [Concomitant]

REACTIONS (3)
  - ALOPECIA [None]
  - NAUSEA [None]
  - VOMITING [None]
